FAERS Safety Report 12632408 (Version 2)
Quarter: 2016Q3

REPORT INFORMATION
  Report Type: Spontaneous
  Country: US (occurrence: US)
  Receive Date: 20160808
  Receipt Date: 20160808
  Transmission Date: 20161109
  Serious: No
  Sender: FDA-Public Use
  Company Number: US-BEH-2016062743

PATIENT
  Sex: Female
  Weight: 54.5 kg

DRUGS (40)
  1. ADVAIR HFA [Concomitant]
     Active Substance: FLUTICASONE PROPIONATE\SALMETEROL XINAFOATE
  2. DIFLUCAN [Concomitant]
     Active Substance: FLUCONAZOLE
  3. FLONASE [Concomitant]
     Active Substance: FLUTICASONE PROPIONATE
  4. KEFLEX [Concomitant]
     Active Substance: CEPHALEXIN
  5. LEVOXYL [Concomitant]
     Active Substance: LEVOTHYROXINE SODIUM
  6. NASONEX [Concomitant]
     Active Substance: MOMETASONE FUROATE
  7. HYDROCORTISONE. [Concomitant]
     Active Substance: HYDROCORTISONE
  8. DIPHENHYDRAMINE. [Concomitant]
     Active Substance: DIPHENHYDRAMINE
  9. EPIPEN [Concomitant]
     Active Substance: EPINEPHRINE
  10. AZITHROMYCIN ANHYDROUS. [Concomitant]
     Active Substance: AZITHROMYCIN ANHYDROUS
  11. RANITIDINE. [Concomitant]
     Active Substance: RANITIDINE
  12. PROBIOTICA [Concomitant]
     Active Substance: PROBIOTICS NOS
  13. COUGH+ COLD MUCUS RELIEF [Concomitant]
  14. CIPRO [Concomitant]
     Active Substance: CIPROFLOXACIN HYDROCHLORIDE
  15. AFRIN [Concomitant]
     Active Substance: OXYMETAZOLINE
  16. PYRIDIUM [Concomitant]
     Active Substance: PHENAZOPYRIDINE
  17. HIZENTRA [Suspect]
     Active Substance: HUMAN IMMUNOGLOBULIN G
     Indication: IMMUNODEFICIENCY COMMON VARIABLE
     Route: 058
  18. BENZONATATE. [Concomitant]
     Active Substance: BENZONATATE
  19. ALBUTEROL. [Concomitant]
     Active Substance: ALBUTEROL
  20. PROAIR HFA [Concomitant]
     Active Substance: ALBUTEROL SULFATE
  21. PHENAZOPYRIDINE. [Concomitant]
     Active Substance: PHENAZOPYRIDINE
  22. ESTRACE [Concomitant]
     Active Substance: ESTRADIOL
  23. CORTISONE + COOLING RELIEF [Concomitant]
  24. SIMBRINZA [Concomitant]
     Active Substance: BRIMONIDINE TARTRATE\BRINZOLAMIDE
  25. MONTELUKAST [Concomitant]
     Active Substance: MONTELUKAST SODIUM
  26. MULTIVITAMINS [Concomitant]
     Active Substance: VITAMINS
  27. MAGNESIUM [Concomitant]
     Active Substance: MAGNESIUM
  28. COLACE [Concomitant]
     Active Substance: DOCUSATE SODIUM
  29. DUONEB [Concomitant]
     Active Substance: ALBUTEROL SULFATE\IPRATROPIUM BROMIDE
  30. AVELOX [Concomitant]
     Active Substance: MOXIFLOXACIN HYDROCHLORIDE
  31. IMODIUM [Concomitant]
     Active Substance: LOPERAMIDE HYDROCHLORIDE
  32. HIZENTRA [Suspect]
     Active Substance: HUMAN IMMUNOGLOBULIN G
     Route: 058
  33. SIMVASTATIN. [Concomitant]
     Active Substance: SIMVASTATIN
  34. OMEPRAZOLE. [Concomitant]
     Active Substance: OMEPRAZOLE
  35. VITAMIN D [Concomitant]
     Active Substance: CHOLECALCIFEROL
  36. ATIVAN [Concomitant]
     Active Substance: LORAZEPAM
  37. PRELIEF [Concomitant]
     Active Substance: CALCIUM GLYCEROPHOSPHATE
  38. HIZENTRA [Suspect]
     Active Substance: HUMAN IMMUNOGLOBULIN G
     Route: 058
  39. ACETAMINOPHEN. [Concomitant]
     Active Substance: ACETAMINOPHEN
  40. LORATADINE. [Concomitant]
     Active Substance: LORATADINE

REACTIONS (2)
  - Infusion site swelling [Unknown]
  - Infusion site erythema [Unknown]
